FAERS Safety Report 12876153 (Version 1)
Quarter: 2016Q4

REPORT INFORMATION
  Report Type: Spontaneous
  Country: US (occurrence: US)
  Receive Date: 20161024
  Receipt Date: 20161024
  Transmission Date: 20170207
  Serious: No
  Sender: FDA-Public Use
  Company Number: US-JAZZ-2016-US-015309

PATIENT
  Sex: Female

DRUGS (26)
  1. XYREM [Suspect]
     Active Substance: SODIUM OXYBATE
     Indication: NARCOLEPSY
     Dosage: 3 G, BID
     Route: 048
     Dates: start: 201511
  2. CLONAZEPAM. [Concomitant]
     Active Substance: CLONAZEPAM
  3. ESTRACE [Concomitant]
     Active Substance: ESTRADIOL
  4. LEVOTHYROXINE SODIUM. [Concomitant]
     Active Substance: LEVOTHYROXINE SODIUM
  5. VITAMIN D [Concomitant]
     Active Substance: CHOLECALCIFEROL
  6. HYDROCHLOROTHIAZIDE. [Concomitant]
     Active Substance: HYDROCHLOROTHIAZIDE
  7. PERCOCET [Concomitant]
     Active Substance: ACETAMINOPHEN\OXYCODONE HYDROCHLORIDE
  8. REMICADE [Concomitant]
     Active Substance: INFLIXIMAB
  9. SIMVASTATIN. [Concomitant]
     Active Substance: SIMVASTATIN
  10. IMIPRAMINE [Concomitant]
     Active Substance: IMIPRAMINE
  11. MELOXICAM. [Concomitant]
     Active Substance: MELOXICAM
  12. ENBREL [Concomitant]
     Active Substance: ETANERCEPT
  13. WELLBUTRIN [Concomitant]
     Active Substance: BUPROPION HYDROCHLORIDE
  14. RITALIN [Concomitant]
     Active Substance: METHYLPHENIDATE HYDROCHLORIDE
  15. METHYLPHENIDATE. [Concomitant]
     Active Substance: METHYLPHENIDATE
  16. PROVIGIL [Concomitant]
     Active Substance: MODAFINIL
  17. LYRICA [Concomitant]
     Active Substance: PREGABALIN
  18. CLINDAMYCIN. [Concomitant]
     Active Substance: CLINDAMYCIN
  19. METHOTREXATE. [Concomitant]
     Active Substance: METHOTREXATE
  20. FLUOCINONIDE. [Concomitant]
     Active Substance: FLUOCINONIDE
  21. FOLIC ACID. [Concomitant]
     Active Substance: FOLIC ACID
  22. HUMALOG [Concomitant]
     Active Substance: INSULIN LISPRO
  23. LISINOPRIL. [Concomitant]
     Active Substance: LISINOPRIL
  24. XYREM [Suspect]
     Active Substance: SODIUM OXYBATE
     Indication: CATAPLEXY
     Dosage: 4 G, BID
     Route: 048
     Dates: start: 201602
  25. LANSOPRAZOLE. [Concomitant]
     Active Substance: LANSOPRAZOLE
  26. FUROSEMIDE. [Concomitant]
     Active Substance: FUROSEMIDE

REACTIONS (1)
  - Oxygen saturation decreased [Unknown]
